FAERS Safety Report 15753146 (Version 6)
Quarter: 2024Q2

REPORT INFORMATION
  Report Type: Report from Study
  Country: FR (occurrence: FR)
  Receive Date: 20181222
  Receipt Date: 20240422
  Transmission Date: 20240716
  Serious: Yes (Hospitalization, Other)
  Sender: FDA-Public Use
  Company Number: FR-ABBVIE-18K-056-2597738-00

PATIENT
  Age: 59 Year
  Sex: Male
  Weight: 47 kg

DRUGS (9)
  1. HUMIRA [Suspect]
     Active Substance: ADALIMUMAB
     Indication: Colitis ulcerative
     Dosage: 160 MG IN ONCE AT DAY 0
     Route: 058
     Dates: start: 20181001, end: 20181001
  2. HUMIRA [Suspect]
     Active Substance: ADALIMUMAB
     Dosage: 80 MG IN ONCE AT DAY14
     Route: 058
     Dates: start: 20181014, end: 20181014
  3. HUMIRA [Suspect]
     Active Substance: ADALIMUMAB
     Dosage: FIRST ADMIN DATE- 2018
     Route: 058
     Dates: end: 20181124
  4. AZATHIOPRINE SODIUM [Concomitant]
     Active Substance: AZATHIOPRINE SODIUM
     Indication: Colitis ulcerative
     Route: 048
     Dates: start: 20110301
  5. AZATHIOPRINE SODIUM [Concomitant]
     Active Substance: AZATHIOPRINE SODIUM
     Indication: Colitis ulcerative
     Dosage: FREQUENCY TEXT: X1
     Route: 048
     Dates: start: 20110301
  6. KARDEGIC [Concomitant]
     Active Substance: ASPIRIN DL-LYSINE
     Indication: Arteriosclerosis coronary artery
     Dosage: FREQUENCY TEXT: 1
     Route: 048
  7. FUROSEMIDE [Concomitant]
     Active Substance: FUROSEMIDE
     Indication: Diuretic therapy
     Dosage: FREQUENCY TEXT: X1
     Route: 048
  8. SPIRONOLACTONE [Concomitant]
     Active Substance: SPIRONOLACTONE
     Indication: Diuretic therapy
     Route: 048
  9. Fivasa [Concomitant]
     Indication: Product used for unknown indication
     Dosage: NOON AND NIGHT

REACTIONS (21)
  - Seizure [Not Recovered/Not Resolved]
  - Incoherent [Recovered/Resolved]
  - Insomnia [Not Recovered/Not Resolved]
  - Arthritis [Recovering/Resolving]
  - Oesophagitis ulcerative [Not Recovered/Not Resolved]
  - Malnutrition [Recovered/Resolved]
  - Hiatus hernia [Recovering/Resolving]
  - Inflammation [Recovered/Resolved]
  - Melaena [Recovered/Resolved]
  - Hepatic cytolysis [Recovered/Resolved]
  - Chronic obstructive pulmonary disease [Not Recovered/Not Resolved]
  - Oesophagitis ulcerative [Recovered/Resolved]
  - Confusional state [Not Recovered/Not Resolved]
  - Aspergillus infection [Not Recovered/Not Resolved]
  - Delirium [Recovered/Resolved]
  - Arthritis [Not Recovered/Not Resolved]
  - Pseudomonas infection [Not Recovered/Not Resolved]
  - Mycobacterium chelonae infection [Recovered/Resolved]
  - Diarrhoea [Recovered/Resolved]
  - Hepatitis viral [Recovered/Resolved]
  - Herpes simplex [Not Recovered/Not Resolved]

NARRATIVE: CASE EVENT DATE: 20181124
